FAERS Safety Report 5886573-0 (Version None)
Quarter: 2008Q3

REPORT INFORMATION
  Report Type: 
  Country: None (occurrence: None)
  Receive Date: 20080917
  Receipt Date: 20080911
  Transmission Date: 20090109
  Serious: Yes (Death)
  Sender: FDA-Public Use
  Company Number: GB-TEVA-177239ISR

PATIENT
  Age: 39 Year
  Sex: Male

DRUGS (3)
  1. MIRTAZAPINE [Suspect]
     Route: 048
  2. PERPHENAZINE [Suspect]
     Indication: DEMENTIA
     Route: 048
     Dates: end: 20080814
  3. PERPHENAZINE [Suspect]
     Route: 048

REACTIONS (1)
  - CARDIAC ARREST [None]
